FAERS Safety Report 4340425-6 (Version None)
Quarter: 2004Q2

REPORT INFORMATION
  Report Type: 
  Country: None (occurrence: None)
  Receive Date: 20040414
  Receipt Date: 20040405
  Transmission Date: 20050107
  Serious: Yes (Hospitalization)
  Sender: FDA-Public Use
  Company Number: 2004-03-1436

PATIENT
  Age: 37 Year
  Sex: Male
  Weight: 93 kg

DRUGS (2)
  1. PEG-INTRON [Suspect]
     Indication: CHRONIC HEPATITIS
     Dosage: 150 MCG QWK SUBCUTANEOUS
     Route: 058
     Dates: start: 20030714
  2. REBETOL [Suspect]
     Indication: HEPATITIS C
     Dosage: 1200MG QD ORAL
     Route: 048
     Dates: start: 20030714

REACTIONS (2)
  - AUTOIMMUNE DISORDER [None]
  - FAMILIAL MEDITERRANEAN FEVER [None]
